FAERS Safety Report 15131459 (Version 7)
Quarter: 2019Q3

REPORT INFORMATION
  Report Type: Spontaneous
  Country: JP (occurrence: JP)
  Receive Date: 20180711
  Receipt Date: 20190809
  Transmission Date: 20191004
  Serious: Yes (Death, Other)
  Sender: FDA-Public Use
  Company Number: JP-LUNDBECK-DKLU2051340

PATIENT
  Age: 6 Month
  Sex: Female
  Weight: 8 kg

DRUGS (3)
  1. SABRIL [Suspect]
     Active Substance: VIGABATRIN
     Dosage: 1150 MG/DAY, BID
     Route: 048
     Dates: start: 20180526, end: 20180528
  2. SABRIL [Suspect]
     Active Substance: VIGABATRIN
     Dosage: 750 MG/DAY, BID
     Route: 048
     Dates: start: 20180510, end: 20180525
  3. SABRIL [Suspect]
     Active Substance: VIGABATRIN
     Indication: INFANTILE SPASMS
     Dosage: 350 MG/DAY, BID
     Route: 048
     Dates: start: 20180414, end: 20180509

REACTIONS (2)
  - Respiratory failure [Fatal]
  - Therapeutic product effect incomplete [Unknown]

NARRATIVE: CASE EVENT DATE: 2018
